FAERS Safety Report 20640962 (Version 1)
Quarter: 2022Q1

REPORT INFORMATION
  Report Type: Spontaneous
  Country: US (occurrence: US)
  Receive Date: 20220327
  Receipt Date: 20220327
  Transmission Date: 20220423
  Serious: Yes (Hospitalization)
  Sender: FDA-Public Use
  Company Number: US-BRISTOL-MYERS SQUIBB COMPANY-2022-010650

PATIENT
  Sex: Male

DRUGS (1)
  1. ELIQUIS [Suspect]
     Active Substance: APIXABAN
     Indication: Thrombosis prophylaxis
     Dosage: DOSE : UNAVAILABLE (NOT PROVIDED);     FREQ : UNAVAILABLE (NOT PROVIDED)
     Route: 065
     Dates: start: 20211228

REACTIONS (3)
  - Dizziness [Unknown]
  - Blood pressure orthostatic decreased [Unknown]
  - Confusional state [Unknown]
